FAERS Safety Report 8255497 (Version 4)
Quarter: 2014Q2

REPORT INFORMATION
  Report Type: Spontaneous
  Country: ES (occurrence: ES)
  Receive Date: 20111118
  Receipt Date: 20140520
  Transmission Date: 20141212
  Serious: Yes (Life-Threatening, Hospitalization)
  Sender: FDA-Public Use
  Company Number: ES-ELI_LILLY_AND_COMPANY-ES201111004817

PATIENT
  Age: 40 Year
  Sex: Female

DRUGS (5)
  1. EFIENT [Suspect]
     Indication: ACUTE MYOCARDIAL INFARCTION
     Dosage: 10 MG, QD
     Route: 048
     Dates: start: 20110616, end: 20110712
  2. EFIENT [Suspect]
     Dosage: 60 MG, SINGLE LOADING DOSE
  3. CLOPIDOGREL [Concomitant]
     Dosage: 300 MG, SINGLE LOADING DOSE
  4. ACETYLSALICYLIC ACID [Concomitant]
     Dosage: 100 MG, QD
  5. ABCIXIMAB [Concomitant]

REACTIONS (2)
  - Cardiogenic shock [Recovered/Resolved]
  - Hypersensitivity [Recovered/Resolved]
